FAERS Safety Report 11138392 (Version 3)
Quarter: 2015Q3

REPORT INFORMATION
  Report Type: Spontaneous
  Country: BR (occurrence: BR)
  Receive Date: 20150526
  Receipt Date: 20150904
  Transmission Date: 20151125
  Serious: Yes (Hospitalization, Other)
  Sender: FDA-Public Use
  Company Number: PHHY2015BR063511

PATIENT
  Age: 18 Year
  Sex: Male
  Weight: 68 kg

DRUGS (7)
  1. TOBI [Suspect]
     Active Substance: TOBRAMYCIN
     Indication: PSEUDOMONAS INFECTION
     Dosage: UNK
     Route: 065
  2. CREON [Concomitant]
     Active Substance: PANCRELIPASE AMYLASE\PANCRELIPASE LIPASE\PANCRELIPASE PROTEASE
     Indication: CYSTIC FIBROSIS
     Dosage: 6 DF, QD
     Route: 048
     Dates: start: 2001
  3. TOBI [Suspect]
     Active Substance: TOBRAMYCIN
     Indication: CYSTIC FIBROSIS
  4. ZOTEON PODHALER [Suspect]
     Active Substance: TOBRAMYCIN
     Indication: CYSTIC FIBROSIS
  5. ZOTEON PODHALER [Suspect]
     Active Substance: TOBRAMYCIN
     Indication: PSEUDOMONAS INFECTION
     Dosage: UNK
     Route: 055
     Dates: start: 201405
  6. PULMOZYME [Concomitant]
     Active Substance: DORNASE ALFA
     Indication: CYSTIC FIBROSIS
     Dosage: 1 DF, QD
     Route: 055
     Dates: start: 2010
  7. CREON [Concomitant]
     Active Substance: PANCRELIPASE AMYLASE\PANCRELIPASE LIPASE\PANCRELIPASE PROTEASE
     Indication: PANCREATIC INSUFFICIENCY

REACTIONS (20)
  - Condition aggravated [Unknown]
  - Pulmonary artery dilatation [Unknown]
  - Cardiovascular disorder [Unknown]
  - Haemoptysis [Recovering/Resolving]
  - Clubbing [Unknown]
  - Cough [Unknown]
  - Sputum abnormal [Unknown]
  - Prothrombin time prolonged [Unknown]
  - International normalised ratio increased [Unknown]
  - Haemorrhage [Unknown]
  - Blood phosphorus increased [Unknown]
  - Blood urea increased [Unknown]
  - Weight decreased [Unknown]
  - C-reactive protein increased [Unknown]
  - Blood magnesium increased [Unknown]
  - Blood chloride decreased [Unknown]
  - Procedural complication [Unknown]
  - Crepitations [Unknown]
  - Cystic fibrosis [Unknown]
  - Red blood cell sedimentation rate increased [Unknown]

NARRATIVE: CASE EVENT DATE: 201410
